FAERS Safety Report 23486415 (Version 2)
Quarter: 2024Q1

REPORT INFORMATION
  Report Type: Spontaneous
  Country: JP (occurrence: JP)
  Receive Date: 20240206
  Receipt Date: 20240208
  Transmission Date: 20240410
  Serious: Yes (Death, Hospitalization, Other)
  Sender: FDA-Public Use
  Company Number: JP-MSD-2401JPN006842J

PATIENT
  Age: 71 Year
  Sex: Female
  Weight: 51 kg

DRUGS (7)
  1. KEYTRUDA [Suspect]
     Active Substance: PEMBROLIZUMAB
     Indication: Lung adenocarcinoma
     Dosage: 200 MILLIGRAM
     Route: 041
     Dates: start: 20230721, end: 20231002
  2. AZOSEMIDE [Concomitant]
     Active Substance: AZOSEMIDE
     Dosage: UNK
     Route: 048
     Dates: start: 20231019, end: 20231026
  3. OLANZAPINE [Concomitant]
     Active Substance: OLANZAPINE
     Dosage: UNK
     Route: 048
     Dates: start: 20231019, end: 20231127
  4. MOSAPRIDE CITRATE [Concomitant]
     Active Substance: MOSAPRIDE CITRATE
     Dosage: UNK
     Route: 048
     Dates: start: 20231019, end: 20231102
  5. VOLTAREN [Concomitant]
     Active Substance: DICLOFENAC SODIUM
     Dosage: UNK
     Route: 048
     Dates: start: 20231019, end: 20231128
  6. URSO [Concomitant]
     Active Substance: URSODIOL
     Dosage: UNK
     Route: 048
     Dates: start: 20231019, end: 20231102
  7. MIYA-BM [Concomitant]
     Active Substance: CLOSTRIDIUM BUTYRICUM SPORES STRAIN M-55
     Dosage: UNK
     Route: 048
     Dates: start: 20231019, end: 20231104

REACTIONS (1)
  - Immune-mediated enterocolitis [Fatal]

NARRATIVE: CASE EVENT DATE: 20231019
